FAERS Safety Report 8289199-7 (Version None)
Quarter: 2012Q2

REPORT INFORMATION
  Report Type: 
  Country: None (occurrence: None)
  Receive Date: 20120417
  Receipt Date: 20120411
  Transmission Date: 20120825
  Serious: Yes (Other)
  Sender: FDA-Public Use
  Company Number: PHHY2012US030825

PATIENT
  Age: 68 Year
  Sex: Female

DRUGS (1)
  1. PACLITAXEL [Suspect]
     Indication: BREAST CANCER METASTATIC
     Dosage: 80 MG/M2, UNK

REACTIONS (8)
  - ONYCHOLYSIS [None]
  - ERYTHEMA [None]
  - PAIN IN EXTREMITY [None]
  - PYOGENIC GRANULOMA [None]
  - OEDEMA PERIPHERAL [None]
  - TENDERNESS [None]
  - NAIL DISCOLOURATION [None]
  - TRAUMATIC HAEMATOMA [None]
